FAERS Safety Report 9398802 (Version 1)
Quarter: 2013Q3

REPORT INFORMATION
  Report Type: Spontaneous
  Country: IT (occurrence: IT)
  Receive Date: 20130713
  Receipt Date: 20130713
  Transmission Date: 20140515
  Serious: Yes (Death, Congenital Anomaly)
  Sender: FDA-Public Use
  Company Number: IT-JNJFOC-20130708200

PATIENT
  Sex: 0

DRUGS (5)
  1. ZIRTEC [Suspect]
     Indication: ROSACEA
     Dosage: MOTHER WAS ON THERAPY OF SUSPECT DRUG. DOSING DETAILS ARE OF MOTHER.
     Route: 064
     Dates: start: 20130424, end: 20130429
  2. ZIRTEC [Suspect]
     Indication: FOETAL EXPOSURE DURING PREGNANCY
     Dosage: MOTHER WAS ON THERAPY OF SUSPECT DRUG. DOSING DETAILS ARE OF MOTHER.
     Route: 064
     Dates: start: 20130424, end: 20130429
  3. AMBRAMYCIN [Suspect]
     Indication: ROSACEA
     Route: 064
     Dates: start: 20130424, end: 20130429
  4. AMBRAMYCIN [Suspect]
     Indication: FOETAL EXPOSURE DURING PREGNANCY
     Route: 064
     Dates: start: 20130424, end: 20130429
  5. FOLIC ACID [Concomitant]
     Indication: PRODUCT USED FOR UNKNOWN INDICATION
     Route: 064

REACTIONS (2)
  - Foetal death [Fatal]
  - Foetal disorder [Unknown]
